FAERS Safety Report 17824234 (Version 1)
Quarter: 2020Q2

REPORT INFORMATION
  Report Type: Spontaneous
  Country: US (occurrence: US)
  Receive Date: 20200526
  Receipt Date: 20200526
  Transmission Date: 20200714
  Serious: No
  Sender: FDA-Public Use
  Company Number: US-BAUSCH-BL-2020-015218

PATIENT
  Age: 64 Year
  Sex: Male

DRUGS (2)
  1. XIFAXAN [Suspect]
     Active Substance: RIFAXIMIN
     Indication: POUCHITIS
     Dosage: FOR MORE THAN A YEAR NOW, 1 TABLET IN THE MORNING AND 2 TABLETS AT BEDTIME
     Route: 048
     Dates: end: 20200401
  2. XIFAXAN [Suspect]
     Active Substance: RIFAXIMIN
     Indication: PRODUCT USE IN UNAPPROVED INDICATION
     Dosage: USING FOR 1 TO 1.5 YEARS
     Route: 048
     Dates: end: 20200516

REACTIONS (8)
  - Pouchitis [Not Recovered/Not Resolved]
  - Drug effective for unapproved indication [Unknown]
  - Product prescribing error [Unknown]
  - Disease recurrence [Not Recovered/Not Resolved]
  - Product use in unapproved indication [Unknown]
  - Therapy interrupted [Unknown]
  - Middle insomnia [Not Recovered/Not Resolved]
  - Insurance issue [Unknown]

NARRATIVE: CASE EVENT DATE: 20200401
